FAERS Safety Report 9726418 (Version 1)
Quarter: 2013Q4

REPORT INFORMATION
  Report Type: Report from Study
  Country: US (occurrence: US)
  Receive Date: 20131203
  Receipt Date: 20131203
  Transmission Date: 20140711
  Serious: Yes (Hospitalization)
  Sender: FDA-Public Use
  Company Number: US-US-EMD SERONO, INC.-7252807

PATIENT
  Sex: Female
  Weight: 111 kg

DRUGS (1)
  1. REBIF [Suspect]
     Indication: PRODUCT USED FOR UNKNOWN INDICATION
     Route: 058
     Dates: start: 20130825, end: 201311

REACTIONS (4)
  - Fatigue [Not Recovered/Not Resolved]
  - Injection site rash [Unknown]
  - Thrombosis [Recovered/Resolved]
  - Chest pain [Recovered/Resolved]
